FAERS Safety Report 9154833 (Version 1)
Quarter: 2013Q1

REPORT INFORMATION
  Report Type: Spontaneous
  Country: US (occurrence: None)
  Receive Date: 20130305
  Receipt Date: 20130305
  Transmission Date: 20140127
  Serious: Yes (Hospitalization, Other)
  Sender: FDA-Public Use
  Company Number: None

PATIENT
  Age: 43 Year
  Sex: 0

DRUGS (1)
  1. WARFARIN [Suspect]

REACTIONS (2)
  - International normalised ratio increased [None]
  - Arteriovenous fistula site haemorrhage [None]
